FAERS Safety Report 7940727-8 (Version None)
Quarter: 2011Q4

REPORT INFORMATION
  Report Type: 
  Country: None (occurrence: None)
  Receive Date: 20111114
  Receipt Date: 20101227
  Transmission Date: 20120403
  Serious: Yes (Death)
  Sender: FDA-Public Use
  Company Number: 2010S1001403

PATIENT
  Age: 59 Year
  Sex: Female
  Weight: 122 kg

DRUGS (7)
  1. GENTAMICIN [Concomitant]
  2. MICAFUNGIN [Concomitant]
  3. CASPOFUNGIN ACETATE [Concomitant]
  4. LINEZOLID [Concomitant]
  5. LEVOFLOXACIN [Concomitant]
  6. CUBICIN [Suspect]
     Indication: ENDOCARDITIS ENTEROCOCCAL
     Dosage: 10.2 MG/KG;Q48H;IV
     Route: 042
     Dates: start: 20100802, end: 20100909
  7. AZTREONAM [Concomitant]

REACTIONS (3)
  - BACTERIAL INFECTION [None]
  - PATHOGEN RESISTANCE [None]
  - URINARY TRACT INFECTION [None]
